FAERS Safety Report 5799401-9 (Version None)
Quarter: 2008Q3

REPORT INFORMATION
  Report Type: 
  Country: None (occurrence: None)
  Receive Date: 20080703
  Receipt Date: 20080626
  Transmission Date: 20090109
  Serious: Yes (Other)
  Sender: FDA-Public Use
  Company Number: TW-PFIZER INC-2008054505

PATIENT
  Age: 60 Year
  Sex: Male

DRUGS (2)
  1. CHANTIX [Suspect]
     Route: 048
     Dates: start: 20080501, end: 20080626
  2. ALL OTHER THERAPEUTIC PRODUCTS [Concomitant]
     Route: 048

REACTIONS (3)
  - DRY MOUTH [None]
  - HYPERTENSION [None]
  - SOMNOLENCE [None]
